FAERS Safety Report 11122092 (Version 1)
Quarter: 2015Q2

REPORT INFORMATION
  Report Type: Spontaneous
  Country: None (occurrence: None)
  Receive Date: 20150518
  Receipt Date: 20150518
  Transmission Date: 20150821
  Serious: Yes (Disabling, Other)
  Sender: FDA-Public Use
  Company Number: None

PATIENT
  Age: 37 Year
  Sex: Female
  Weight: 89.36 kg

DRUGS (3)
  1. MULTIVITAMIN [Concomitant]
     Active Substance: VITAMINS
  2. ZYRTEC [Concomitant]
     Active Substance: CETIRIZINE HYDROCHLORIDE
  3. CONTRAVE [Suspect]
     Active Substance: BUPROPION HYDROCHLORIDE\NALTREXONE HYDROCHLORIDE
     Indication: WEIGHT DECREASED
     Dosage: 1, 1X DAY FOR 7 DAY
     Route: 048
     Dates: start: 20150512, end: 20150515

REACTIONS (9)
  - Mood swings [None]
  - Panic attack [None]
  - Feeling abnormal [None]
  - Deafness [None]
  - Nausea [None]
  - Tunnel vision [None]
  - Palpitations [None]
  - Dyspnoea [None]
  - Muscle disorder [None]

NARRATIVE: CASE EVENT DATE: 20150515
